FAERS Safety Report 9385799 (Version 2)
Quarter: 2013Q3

REPORT INFORMATION
  Report Type: Report from Study
  Country: IT (occurrence: IT)
  Receive Date: 20130705
  Receipt Date: 20130731
  Transmission Date: 20140515
  Serious: Yes (Death)
  Sender: FDA-Public Use
  Company Number: PHHO2013IT007197

PATIENT
  Age: 55 Year
  Sex: Male
  Weight: 83 kg

DRUGS (20)
  1. CERTICAN [Suspect]
     Indication: PROPHYLAXIS AGAINST TRANSPLANT REJECTION
     Dosage: 1.5 MG, QD
     Route: 048
     Dates: start: 20091106
  2. CERTICAN [Suspect]
     Dosage: 0.25 MG, BID
  3. SANDIMMUN NEORAL [Suspect]
     Indication: PROPHYLAXIS AGAINST TRANSPLANT REJECTION
     Dosage: 50 MG, QD
     Route: 048
     Dates: start: 20091106
  4. SANDIMMUN NEORAL [Suspect]
     Indication: PROPHYLAXIS AGAINST TRANSPLANT REJECTION
     Dosage: UNK
  5. MEDROL [Suspect]
     Indication: PROPHYLAXIS AGAINST TRANSPLANT REJECTION
     Dosage: 4 MG, QD
     Route: 048
     Dates: start: 20091106
  6. MEDROL [Suspect]
     Dosage: 8 MG, BID
  7. BETA BLOCKING AGENTS [Concomitant]
     Indication: TACHYCARDIA
     Dosage: 100 MG, UNK
     Dates: start: 20081008
  8. LEVOFLOXACIN [Concomitant]
     Indication: INFECTION
     Dosage: 1000 MG, UNK
     Dates: start: 20091108
  9. CEFTRIAXONE [Concomitant]
     Indication: INFECTION
     Dosage: 18 UKN, UNK
     Dates: start: 20091108
  10. TENORMIN [Concomitant]
     Dosage: 100 MG, UNK
     Route: 048
  11. ANTRA [Concomitant]
     Dosage: 40 MG, UNK
     Route: 048
  12. CARDURA [Concomitant]
     Dosage: 8 MG, UNK
     Route: 048
  13. CARDIOASPIRIN [Concomitant]
     Dosage: UNK
     Route: 048
  14. INEGY [Concomitant]
     Dosage: 10 MG, UNK
     Route: 048
  15. ESKIM [Concomitant]
     Dosage: 500 MG, QD
  16. IMIPENEM [Concomitant]
     Dosage: 1 G, QD
     Route: 042
  17. KLACID                                  /IRE/ [Concomitant]
     Dosage: 500 MG, QD
     Route: 048
  18. DIFLUCAN [Concomitant]
     Dosage: 100 MG, QD
  19. FLUIMUCIL [Concomitant]
     Dosage: 1 DF, UNK
  20. SYMBICORT [Concomitant]
     Dosage: 2 SPRAYS QD

REACTIONS (1)
  - Bronchopneumonia [Fatal]
